FAERS Safety Report 12916016 (Version 1)
Quarter: 2016Q4

REPORT INFORMATION
  Report Type: Spontaneous
  Country: US (occurrence: US)
  Receive Date: 20161104
  Receipt Date: 20161104
  Transmission Date: 20170207
  Serious: No
  Sender: FDA-Public Use
  Company Number: US-SA-2016SA089548

PATIENT
  Sex: Female

DRUGS (2)
  1. UNISOM SLEEPTABS [Suspect]
     Active Substance: DOXYLAMINE SUCCINATE
     Dosage: 2-3 DOSAGE FORM (PILLS)
     Route: 065
  2. UNISOM SLEEPTABS [Suspect]
     Active Substance: DOXYLAMINE SUCCINATE
     Route: 065

REACTIONS (2)
  - Intentional product misuse [Unknown]
  - Drug ineffective [Unknown]
